FAERS Safety Report 7048257-5 (Version None)
Quarter: 2010Q4

REPORT INFORMATION
  Report Type: 
  Country: None (occurrence: None)
  Receive Date: 20101015
  Receipt Date: 20100614
  Transmission Date: 20110411
  Serious: No
  Sender: FDA-Public Use
  Company Number: US-PFIZER INC-2010075020

PATIENT
  Sex: Female
  Weight: 63 kg

DRUGS (3)
  1. INSPRA [Suspect]
     Indication: HYPERALDOSTERONISM
     Dosage: 25 MG, 2X/DAY
     Route: 048
     Dates: start: 20100301
  2. CYMBALTA [Concomitant]
     Dosage: UNK
  3. MILNACIPRAN [Concomitant]
     Dosage: UNK

REACTIONS (4)
  - BLOOD PRESSURE FLUCTUATION [None]
  - CARBON DIOXIDE DECREASED [None]
  - PAIN [None]
  - PROTEIN TOTAL DECREASED [None]
